FAERS Safety Report 10602608 (Version 2)
Quarter: 2014Q4

REPORT INFORMATION
  Report Type: Report from Study
  Country: DE (occurrence: DE)
  Receive Date: 20141124
  Receipt Date: 20141216
  Transmission Date: 20150529
  Serious: Yes (Other)
  Sender: FDA-Public Use
  Company Number: DE-TEVA-523704GER

PATIENT
  Age: 83 Year
  Sex: Male
  Weight: 78 kg

DRUGS (5)
  1. AZILECT [Suspect]
     Active Substance: RASAGILINE MESYLATE
     Indication: PARKINSON^S DISEASE
     Dosage: 1 MILLIGRAM DAILY;
     Route: 048
     Dates: start: 20140930, end: 20141023
  2. CARBIDOPA. [Concomitant]
     Active Substance: CARBIDOPA
  3. LEVODOPA [Concomitant]
     Active Substance: LEVODOPA
  4. DOMPERIDON [Concomitant]
     Active Substance: DOMPERIDONE
     Indication: NAUSEA
     Dates: start: 20120802
  5. ENTACAPON [Concomitant]

REACTIONS (3)
  - Tremor [Recovered/Resolved]
  - Akinesia [Recovered/Resolved]
  - Gait disturbance [Recovered/Resolved]

NARRATIVE: CASE EVENT DATE: 201410
